FAERS Safety Report 25058874 (Version 1)
Quarter: 2025Q1

REPORT INFORMATION
  Report Type: Spontaneous
  Country: US (occurrence: None)
  Receive Date: 20250307
  Receipt Date: 20250307
  Transmission Date: 20250408
  Serious: Yes (Disabling, Other)
  Sender: FDA-CTU
  Company Number: None

PATIENT
  Age: 48 Year
  Sex: Female
  Weight: 69.75 kg

DRUGS (5)
  1. BEVACIZUMAB [Suspect]
     Active Substance: BEVACIZUMAB
     Indication: Histoplasmosis
     Route: 047
  2. TRULICITY [Concomitant]
     Active Substance: DULAGLUTIDE
  3. PHENTERMINE [Concomitant]
     Active Substance: PHENTERMINE
  4. VITAMINS [Concomitant]
     Active Substance: VITAMINS
  5. IBUPROFEN [Concomitant]
     Active Substance: IBUPROFEN

REACTIONS (12)
  - Maternal exposure during pregnancy [None]
  - Complication of delivery [None]
  - Umbilical cord prolapse [None]
  - Haemorrhage [None]
  - Gestational diabetes [None]
  - Swelling [None]
  - Necrotising bronchiolitis [None]
  - Sinus operation [None]
  - Pain in jaw [None]
  - Pulpless tooth [None]
  - Joint swelling [None]
  - Arthralgia [None]

NARRATIVE: CASE EVENT DATE: 20250115
